FAERS Safety Report 8308150-4 (Version None)
Quarter: 2012Q2

REPORT INFORMATION
  Report Type: 
  Country: None (occurrence: None)
  Receive Date: 20120424
  Receipt Date: 20120417
  Transmission Date: 20120825
  Serious: Yes (Hospitalization, Disabling)
  Sender: FDA-Public Use
  Company Number: US-ROCHE-1044335

PATIENT
  Sex: Female

DRUGS (3)
  1. NEURONTIN [Concomitant]
     Indication: PAIN
     Route: 048
     Dates: start: 20110901
  2. ZELBORAF [Suspect]
     Indication: METASTATIC MALIGNANT MELANOMA
     Route: 048
     Dates: start: 20110909, end: 20111208
  3. METHADONE HCL [Concomitant]
     Indication: PAIN
     Route: 048
     Dates: start: 20111201

REACTIONS (10)
  - HEPATITIS [None]
  - MYALGIA [None]
  - ARTHRALGIA [None]
  - MASS [None]
  - NAUSEA [None]
  - VOMITING [None]
  - HEPATIC ENZYME INCREASED [None]
  - RASH [None]
  - FATIGUE [None]
  - ERYTHEMA [None]
